FAERS Safety Report 9904452 (Version 1)
Quarter: 2014Q1

REPORT INFORMATION
  Report Type: Spontaneous
  Country: US (occurrence: US)
  Receive Date: 20140218
  Receipt Date: 20140218
  Transmission Date: 20141002
  Serious: Yes (Other)
  Sender: FDA-Public Use
  Company Number: US-HORIZON-DUE-0057-2013

PATIENT
  Age: 37 Year
  Sex: Male

DRUGS (3)
  1. DUEXIS [Suspect]
     Indication: PAIN IN EXTREMITY
     Dosage: 1-3 TIMES DAILY SINCE 2-3 MONTHS
  2. NORTRIPTYLINE [Concomitant]
     Dosage: EVERY NIGHT AT BEDTIME
     Dates: start: 20131017
  3. EFFEXOR [Concomitant]
     Dates: start: 2012

REACTIONS (1)
  - Appendicitis [Recovered/Resolved]
